FAERS Safety Report 24184705 (Version 2)
Quarter: 2024Q4

REPORT INFORMATION
  Report Type: Spontaneous
  Country: JP (occurrence: JP)
  Receive Date: 20240807
  Receipt Date: 20241003
  Transmission Date: 20250115
  Serious: Yes (Hospitalization, Other)
  Sender: BRISTOL MYERS SQUIBB
  Company Number: JP-BRISTOL-MYERS SQUIBB COMPANY-2024-123645

PATIENT
  Age: 79 Year
  Sex: Female

DRUGS (6)
  1. YERVOY [Suspect]
     Active Substance: IPILIMUMAB
     Indication: Malignant melanoma
     Dosage: 1ST DOSE ADMINISTRATION
     Route: 041
     Dates: start: 20240611, end: 20240611
  2. YERVOY [Suspect]
     Active Substance: IPILIMUMAB
     Dosage: 2ND DOSE ADMINISTRATION
     Route: 041
     Dates: start: 20240702, end: 20240702
  3. YERVOY [Suspect]
     Active Substance: IPILIMUMAB
     Dosage: 3RD DOSE ADMINISTRATION
     Route: 041
     Dates: start: 20240723, end: 20240723
  4. OPDIVO [Suspect]
     Active Substance: NIVOLUMAB
     Indication: Malignant melanoma
     Dosage: 1ST DOSE ADMINISTRATION
     Route: 041
     Dates: start: 20240611, end: 20240611
  5. OPDIVO [Suspect]
     Active Substance: NIVOLUMAB
     Dosage: 2ND DOSE ADMINISTRATION
     Route: 041
     Dates: start: 20240702, end: 20240702
  6. OPDIVO [Suspect]
     Active Substance: NIVOLUMAB
     Dosage: 3RD DOSE ADMINISTRATION
     Route: 041
     Dates: start: 20240723, end: 20240723

REACTIONS (2)
  - Myositis [Recovering/Resolving]
  - Myocarditis [Recovering/Resolving]

NARRATIVE: CASE EVENT DATE: 20240724
